FAERS Safety Report 8840444 (Version 8)
Quarter: 2013Q4

REPORT INFORMATION
  Report Type: Report from Study
  Country: CA (occurrence: CA)
  Receive Date: 20121015
  Receipt Date: 20131121
  Transmission Date: 20140711
  Serious: Yes (Hospitalization, Other)
  Sender: FDA-Public Use
  Company Number: CA-INCYTE CORPORATION-2012IN001581

PATIENT
  Age: 81 Year
  Sex: Female

DRUGS (7)
  1. JAKAVI [Suspect]
     Indication: MYELOFIBROSIS
     Dosage: 6 DF, UNK
     Route: 048
     Dates: start: 201201
  2. JAKAVI [Suspect]
     Dosage: 3 DF, QD
     Route: 048
  3. JAKAVI [Suspect]
     Dosage: 15 MG, (10 MG, QAM AND 5 MG, QHS)
     Route: 048
     Dates: start: 201210
  4. JAKAVI [Suspect]
     Dosage: 5 MG, BID
     Route: 048
  5. PANTOLOC [Suspect]
     Dosage: UNK UNK, UNK
     Route: 065
  6. PANTOLOC [Suspect]
     Dosage: UNK
  7. ANTIHYPERTENSIVE DRUGS [Concomitant]

REACTIONS (10)
  - Cerebrovascular accident [Unknown]
  - Blindness [Not Recovered/Not Resolved]
  - Herpes zoster [Unknown]
  - Anaemia [Recovered/Resolved]
  - Aphonia [Not Recovered/Not Resolved]
  - Constipation [Unknown]
  - Diarrhoea [Recovered/Resolved]
  - Dyspepsia [Unknown]
  - Fatigue [Unknown]
  - Hypertension [Unknown]
